FAERS Safety Report 17782773 (Version 1)
Quarter: 2020Q2

REPORT INFORMATION
  Report Type: Spontaneous
  Country: US (occurrence: US)
  Receive Date: 20200513
  Receipt Date: 20200513
  Transmission Date: 20200714
  Serious: No
  Sender: FDA-Public Use
  Company Number: US-BAUSCH-BL-2020-012451

PATIENT
  Age: 83 Year
  Sex: Male

DRUGS (2)
  1. LUMIFY [Suspect]
     Active Substance: BRIMONIDINE TARTRATE
     Indication: OCULAR HYPERAEMIA
     Dosage: 1 DROP IN EACH EYE AS NEEDED; FIRST ATTEMPT
     Route: 047
     Dates: start: 20200421, end: 20200421
  2. LUMIFY [Suspect]
     Active Substance: BRIMONIDINE TARTRATE
     Dosage: 1 DROP IN EACH EYE AS NEEDED: SECOND ATTEMPT
     Route: 047
     Dates: start: 20200423, end: 20200423

REACTIONS (3)
  - Dry mouth [Recovered/Resolved]
  - Asthenopia [Recovered/Resolved]
  - Headache [Recovered/Resolved]

NARRATIVE: CASE EVENT DATE: 20200421
